FAERS Safety Report 22190154 (Version 1)
Quarter: 2023Q2

REPORT INFORMATION
  Report Type: Spontaneous
  Country: US (occurrence: US)
  Receive Date: 20230410
  Receipt Date: 20230410
  Transmission Date: 20230722
  Serious: No
  Sender: FDA-Public Use
  Company Number: US-AVEO ONCOLOGY-2022-AVEO-US000615

PATIENT

DRUGS (1)
  1. FOTIVDA [Suspect]
     Active Substance: TIVOZANIB HYDROCHLORIDE
     Indication: Renal cell carcinoma
     Dosage: 1.34 MG, DAILY FOR 21 DAYS WITH 7 DAYS OFF (28-DAY CYCLE)
     Route: 048
     Dates: start: 20221205

REACTIONS (11)
  - Fatigue [Unknown]
  - Hypertension [Not Recovered/Not Resolved]
  - Thyroid disorder [Unknown]
  - Vomiting [Unknown]
  - Swelling [Unknown]
  - Fluid retention [Unknown]
  - Headache [Unknown]
  - Thirst [Unknown]
  - Renal impairment [Unknown]
  - Blood iron decreased [Recovered/Resolved]
  - Somnolence [Unknown]
